FAERS Safety Report 18611657 (Version 1)
Quarter: 2020Q4

REPORT INFORMATION
  Report Type: Spontaneous
  Country: US (occurrence: US)
  Receive Date: 20201214
  Receipt Date: 20201214
  Transmission Date: 20210114
  Serious: No
  Sender: FDA-Public Use
  Company Number: US-TEVA-2020-US-1859128

PATIENT
  Age: 71 Year
  Sex: Female
  Weight: 48.17 kg

DRUGS (1)
  1. BUPROPION TEVA [Suspect]
     Active Substance: BUPROPION
     Indication: DEPRESSION
     Dosage: QUARTER OF A 75MG TABLET

REACTIONS (1)
  - Drug intolerance [Unknown]
